FAERS Safety Report 6261575-3 (Version None)
Quarter: 2009Q3

REPORT INFORMATION
  Report Type: 
  Country: None (occurrence: None)
  Receive Date: 20090707
  Receipt Date: 20090707
  Transmission Date: 20100115
  Serious: Yes (Death)
  Sender: FDA-Public Use
  Company Number: None

PATIENT
  Age: 86 Year
  Sex: Male
  Weight: 81.466 kg

DRUGS (13)
  1. BORTEZOMIB, 1.6 MG/M2 IV PUSH OVER 3 TO 5 SECONDS [Suspect]
     Indication: MULTIPLE MYELOMA
     Dosage: 1.6 MG/M2, WEEKLY IV PUSH
     Dates: start: 20090512, end: 20090602
  2. DEXAMETHASONE TAB [Suspect]
     Dosage: 40MG, DAILY X2, PO
     Route: 048
     Dates: start: 20090512, end: 20090603
  3. DIGOXIN [Concomitant]
  4. ASPIRIN [Concomitant]
  5. LEVOTHYROX [Concomitant]
  6. RANITIDINE [Concomitant]
  7. METOPROLOL TARTRATE [Concomitant]
  8. GLYBURIDE [Concomitant]
  9. LOVASTATIN [Concomitant]
  10. TAMSULOSIN HCL [Concomitant]
  11. WARFARIN SODIUM [Concomitant]
  12. ACYCLOVIR [Concomitant]
  13. METFORMIN HCL [Concomitant]

REACTIONS (6)
  - DEHYDRATION [None]
  - DIARRHOEA [None]
  - FATIGUE [None]
  - HYPERGLYCAEMIA [None]
  - HYPOTENSION [None]
  - WEIGHT INCREASED [None]
